FAERS Safety Report 18335534 (Version 1)
Quarter: 2020Q4

REPORT INFORMATION
  Report Type: Report from Study
  Country: US (occurrence: US)
  Receive Date: 20201001
  Receipt Date: 20201001
  Transmission Date: 20210113
  Serious: Yes (Hospitalization)
  Sender: FDA-Public Use
  Company Number: US-JNJFOC-A-US2019-185327

PATIENT
  Age: 77 Year
  Sex: Male
  Weight: 77.18 kg

DRUGS (10)
  1. ADCIRCA [Concomitant]
     Active Substance: TADALAFIL
     Dosage: 20 MG, QD
     Route: 048
  2. RASAGILINE. [Concomitant]
     Active Substance: RASAGILINE
     Dosage: 1 MG, QD
  3. OPSUMIT [Suspect]
     Active Substance: MACITENTAN
     Indication: PULMONARY ARTERIAL HYPERTENSION
     Route: 048
     Dates: start: 20181106
  4. CITALOPRAM [Concomitant]
     Active Substance: CITALOPRAM HYDROBROMIDE
     Dosage: 20 MG, QD
  5. RYTARY [Concomitant]
     Active Substance: CARBIDOPA\LEVODOPA
     Dosage: 48.75 MG, QD
  6. MELOXICAM. [Concomitant]
     Active Substance: MELOXICAM
     Dosage: 15 MG, QD
  7. WARFARIN [Concomitant]
     Active Substance: WARFARIN
     Dosage: 2.5 MG, QD
  8. LATANOPROST. [Concomitant]
     Active Substance: LATANOPROST
  9. IRON [Concomitant]
     Active Substance: IRON
     Dosage: 27 MG, BID
  10. BUMETANIDE. [Concomitant]
     Active Substance: BUMETANIDE
     Dosage: 1 MG, BID

REACTIONS (6)
  - Hospitalisation [Unknown]
  - Dialysis [Unknown]
  - Asthenia [Unknown]
  - Dizziness postural [Not Recovered/Not Resolved]
  - Dizziness [Not Recovered/Not Resolved]
  - Tooth disorder [Unknown]

NARRATIVE: CASE EVENT DATE: 201812
